FAERS Safety Report 23201266 (Version 1)
Quarter: 2023Q4

REPORT INFORMATION
  Report Type: Spontaneous
  Country: CA (occurrence: CA)
  Receive Date: 20231118
  Receipt Date: 20231118
  Transmission Date: 20240109
  Serious: Yes (Other)
  Sender: FDA-Public Use
  Company Number: None

PATIENT
  Age: 90 Year
  Sex: Female
  Weight: 63 kg

DRUGS (18)
  1. OLMESARTAN [Suspect]
     Active Substance: OLMESARTAN
     Indication: Hypertension
     Dosage: 1 EVERY 1 DAYS
     Route: 048
  2. ACETAMINOPHEN W/CAFF./DIHYDROCODEIN [Concomitant]
  3. ATIVAN [Concomitant]
     Active Substance: LORAZEPAM
  4. ATORVASTATIN [Concomitant]
     Active Substance: ATORVASTATIN
     Route: 065
  5. CALCIUM [Concomitant]
     Active Substance: CALCIUM
  6. CANDESARTAN [Concomitant]
     Active Substance: CANDESARTAN
  7. PINAVERIUM BROMIDE [Concomitant]
     Active Substance: PINAVERIUM BROMIDE
  8. LANSOPRAZOLE [Concomitant]
     Active Substance: LANSOPRAZOLE
  9. LASIX [Concomitant]
     Active Substance: FUROSEMIDE
  10. LORAZEPAM [Concomitant]
     Active Substance: LORAZEPAM
     Route: 065
  11. NASACORT AQ [Concomitant]
     Active Substance: TRIAMCINOLONE ACETONIDE
  12. OMNARIS [Concomitant]
     Active Substance: CICLESONIDE
  13. PROCTOSEDYL [Concomitant]
     Active Substance: DIBUCAINE HYDROCHLORIDE\HYDROCORTISONE
  14. PROLIA [Concomitant]
     Active Substance: DENOSUMAB
  15. POLYETHYLENE GLYCOL 3350 [Concomitant]
     Active Substance: POLYETHYLENE GLYCOL 3350
  16. TEARS NATURALE FREE [Concomitant]
     Active Substance: DEXTRAN 70\HYPROMELLOSE 2910 (4000 MPA.S)
  17. VITAMIN D [Concomitant]
     Active Substance: VITAMIN D NOS
  18. XARELTO [Concomitant]
     Active Substance: RIVAROXABAN

REACTIONS (4)
  - Blood sodium decreased [Recovered/Resolved]
  - Head discomfort [Recovered/Resolved]
  - Feeling abnormal [Recovered/Resolved]
  - Brain fog [Recovered/Resolved]
